FAERS Safety Report 8990313 (Version 3)
Quarter: 2013Q1

REPORT INFORMATION
  Report Type: Spontaneous
  Country: US (occurrence: US)
  Receive Date: 20121228
  Receipt Date: 20130115
  Transmission Date: 20140127
  Serious: Yes (Hospitalization, Other)
  Sender: FDA-Public Use
  Company Number: US-GILEAD-2012-0066815

PATIENT
  Sex: Female

DRUGS (3)
  1. LETAIRIS [Suspect]
     Indication: COR PULMONALE CHRONIC
     Dosage: 10 MG, QD
     Route: 048
     Dates: start: 20070817
  2. REMODULIN [Concomitant]
  3. ADCIRCA [Concomitant]

REACTIONS (7)
  - Cardiac failure congestive [Not Recovered/Not Resolved]
  - Fungal infection [Unknown]
  - Pharyngeal oedema [Unknown]
  - Oedema [Unknown]
  - Scleroderma [Unknown]
  - Pulmonary arterial hypertension [Unknown]
  - Fluid retention [Unknown]
